FAERS Safety Report 21278748 (Version 3)
Quarter: 2022Q4

REPORT INFORMATION
  Report Type: Report from Study
  Country: JP (occurrence: JP)
  Receive Date: 20220901
  Receipt Date: 20221115
  Transmission Date: 20230113
  Serious: Yes (Other)
  Sender: FDA-Public Use
  Company Number: JP-BRISTOL-MYERS SQUIBB COMPANY-2022-097964

PATIENT
  Age: 51 Year
  Sex: Male
  Weight: 65 kg

DRUGS (12)
  1. ISTODAX [Suspect]
     Active Substance: ROMIDEPSIN
     Indication: Peripheral T-cell lymphoma unspecified
     Route: 041
     Dates: start: 20210623, end: 20210623
  2. ISTODAX [Suspect]
     Active Substance: ROMIDEPSIN
     Route: 041
     Dates: start: 20210630, end: 20210630
  3. ISTODAX [Suspect]
     Active Substance: ROMIDEPSIN
     Route: 041
     Dates: start: 20210707, end: 20210707
  4. ISTODAX [Suspect]
     Active Substance: ROMIDEPSIN
     Route: 041
     Dates: start: 20210721, end: 20210721
  5. ISTODAX [Suspect]
     Active Substance: ROMIDEPSIN
     Route: 041
     Dates: start: 20210728, end: 20210728
  6. ISTODAX [Suspect]
     Active Substance: ROMIDEPSIN
     Route: 041
     Dates: start: 20210804, end: 20210804
  7. CEVIRIN [ACICLOVIR] [Concomitant]
     Indication: Infection prophylaxis
     Route: 048
  8. LEVOFLOXACIN [Concomitant]
     Active Substance: LEVOFLOXACIN
     Indication: Infection prophylaxis
     Route: 048
  9. NOFUNG [FLUCONAZOLE] [Concomitant]
     Indication: Infection prophylaxis
     Route: 048
  10. METHOTREXATE [Concomitant]
     Active Substance: METHOTREXATE
     Indication: Peripheral T-cell lymphoma unspecified
     Route: 065
     Dates: start: 20210714, end: 20210804
  11. CYTARABINE [Concomitant]
     Active Substance: CYTARABINE
     Indication: Peripheral T-cell lymphoma unspecified
     Route: 065
     Dates: start: 20210714, end: 20210804
  12. PRESOLONE [PREDNISOLONE] [Concomitant]
     Indication: Peripheral T-cell lymphoma unspecified
     Route: 065
     Dates: start: 20210714, end: 20210804

REACTIONS (5)
  - White blood cell count decreased [Recovered/Resolved]
  - Dysgeusia [Recovered/Resolved]
  - Nausea [Recovered/Resolved]
  - Malaise [Recovered/Resolved]
  - Peripheral sensory neuropathy [Recovered/Resolved]

NARRATIVE: CASE EVENT DATE: 20210624
